FAERS Safety Report 21376856 (Version 2)
Quarter: 2025Q1

REPORT INFORMATION
  Report Type: Report from Study
  Country: CA (occurrence: CA)
  Receive Date: 20220926
  Receipt Date: 20250219
  Transmission Date: 20250408
  Serious: Yes (Other)
  Sender: PFIZER
  Company Number: CA-PFIZER INC-202200461746

PATIENT
  Age: 62 Year
  Sex: Male

DRUGS (12)
  1. METHOTREXATE SODIUM [Suspect]
     Active Substance: METHOTREXATE SODIUM
     Route: 065
  2. METHOTREXATE SODIUM [Suspect]
     Active Substance: METHOTREXATE SODIUM
     Dosage: UNK, WEEKLY
     Route: 065
  3. ENTYVIO [Suspect]
     Active Substance: VEDOLIZUMAB
     Indication: Crohn^s disease
     Dosage: 300 MG, 1 EVERY 4  WEEKS
     Route: 042
  4. ENTYVIO [Suspect]
     Active Substance: VEDOLIZUMAB
     Route: 042
  5. ENTYVIO [Suspect]
     Active Substance: VEDOLIZUMAB
     Dosage: 300 MG, 1 EVERY 4  WEEKS
     Route: 042
  6. ENTYVIO [Suspect]
     Active Substance: VEDOLIZUMAB
     Dosage: 300 MG, 1 EVERY 4  WEEKS
     Route: 042
  7. ENTYVIO [Suspect]
     Active Substance: VEDOLIZUMAB
     Dosage: 300 MG, 1 EVERY 4  WEEKS
     Route: 042
  8. ENTYVIO [Suspect]
     Active Substance: VEDOLIZUMAB
     Indication: Crohn^s disease
     Route: 058
  9. STELARA [Concomitant]
     Active Substance: USTEKINUMAB
  10. BUDESONIDE [Concomitant]
     Active Substance: BUDESONIDE
  11. BUDESONIDE [Concomitant]
     Active Substance: BUDESONIDE
  12. ENTOCORT [Concomitant]
     Active Substance: BUDESONIDE

REACTIONS (10)
  - Therapeutic reaction time decreased [Unknown]
  - Irritability [Unknown]
  - Nausea [Unknown]
  - Pain [Unknown]
  - Constipation [Unknown]
  - Malaise [Unknown]
  - Abdominal pain [Unknown]
  - Off label use [Unknown]
  - Crohn^s disease [Unknown]
  - Product dose omission issue [Unknown]
